FAERS Safety Report 5802405-0 (Version None)
Quarter: 2008Q3

REPORT INFORMATION
  Report Type: 
  Country: None (occurrence: None)
  Receive Date: 20080707
  Receipt Date: 20080627
  Transmission Date: 20090109
  Serious: Yes (Death)
  Sender: FDA-Public Use
  Company Number: US-MERCK-0804USA06378

PATIENT
  Age: 87 Year
  Sex: Male
  Weight: 83 kg

DRUGS (6)
  1. JANUMET [Suspect]
     Indication: TYPE 2 DIABETES MELLITUS
     Route: 048
     Dates: start: 20071109, end: 20080522
  2. ACTOS [Concomitant]
     Route: 065
  3. NORVASC [Concomitant]
     Route: 065
  4. DIURETIC (UNSPECIFIED) [Concomitant]
     Route: 065
  5. DIGITEK [Concomitant]
     Route: 065
  6. ASPIRIN [Concomitant]
     Route: 065

REACTIONS (2)
  - BLOOD GLUCOSE INCREASED [None]
  - CARDIAC DISORDER [None]
